FAERS Safety Report 10189805 (Version 1)
Quarter: 2014Q2

REPORT INFORMATION
  Report Type: Spontaneous
  Country: US (occurrence: US)
  Receive Date: 20140522
  Receipt Date: 20140522
  Transmission Date: 20141212
  Serious: Yes (Other)
  Sender: FDA-Public Use
  Company Number: US-SA-2013SA120800

PATIENT
  Age: 71 Year
  Sex: Female
  Weight: 72 kg

DRUGS (7)
  1. LANTUS SOLOSTAR [Suspect]
     Indication: TYPE 2 DIABETES MELLITUS
     Dosage: DOSE:42 UNIT(S)
     Route: 051
     Dates: start: 2007
  2. LANTUS SOLOSTAR [Suspect]
     Indication: TYPE 2 DIABETES MELLITUS
     Dosage: DOSE:42 UNIT(S)
     Route: 051
     Dates: start: 2007
  3. SOLOSTAR [Concomitant]
     Indication: TYPE 2 DIABETES MELLITUS
     Dates: start: 2007
  4. ACARBOSE [Concomitant]
     Route: 065
  5. ATORVASTATIN [Concomitant]
     Route: 065
  6. FUROSEMIDE [Concomitant]
     Route: 065
  7. OMEPRAZOLE [Concomitant]
     Route: 065

REACTIONS (1)
  - Cataract [Unknown]
